FAERS Safety Report 7132599-9 (Version None)
Quarter: 2010Q4

REPORT INFORMATION
  Report Type: 
  Country: None (occurrence: None)
  Receive Date: 20101202
  Receipt Date: 20101124
  Transmission Date: 20110411
  Serious: Yes (Life-Threatening, Hospitalization, Other)
  Sender: FDA-Public Use
  Company Number: DE-PFIZER INC-2010161240

PATIENT
  Age: 85 Year
  Sex: Female
  Weight: 80 kg

DRUGS (4)
  1. PANTOZOL [Suspect]
     Dosage: 20 TO 80 MG DAILY
     Dates: start: 20100817
  2. PANTOZOL [Suspect]
     Dosage: 40 MG, 1X/DAY
     Route: 042
     Dates: start: 20100829, end: 20100829
  3. PANTOZOL [Suspect]
     Dosage: 40 MG, 2X/DAY
     Route: 042
     Dates: start: 20100830, end: 20100901
  4. IMERON [Suspect]
     Indication: ARTERIOGRAM CORONARY
     Dosage: UNK
     Route: 013
     Dates: start: 20100817, end: 20100817

REACTIONS (1)
  - RENAL FAILURE ACUTE [None]
